FAERS Safety Report 6505191-4 (Version None)
Quarter: 2009Q4

REPORT INFORMATION
  Report Type: 
  Country: None (occurrence: None)
  Receive Date: 20091201
  Receipt Date: 20090107
  Transmission Date: 20100525
  Serious: Yes (Hospitalization)
  Sender: FDA-Public Use
  Company Number: 2007-168983-NL

PATIENT
  Age: 34 Year
  Sex: Female
  Weight: 113 kg

DRUGS (7)
  1. NUVARING [Suspect]
     Indication: CONTRACEPTION
     Dates: start: 20050901, end: 20051201
  2. NUVARING [Suspect]
     Indication: DYSMENORRHOEA
     Dates: start: 20050901, end: 20051201
  3. NUVARING [Suspect]
     Indication: HORMONE LEVEL ABNORMAL
     Dates: start: 20050901, end: 20051201
  4. NUVARING [Suspect]
     Indication: CONTRACEPTION
     Dates: start: 20070501, end: 20070601
  5. NUVARING [Suspect]
     Indication: DYSMENORRHOEA
     Dates: start: 20070501, end: 20070601
  6. NUVARING [Suspect]
     Indication: HORMONE LEVEL ABNORMAL
     Dates: start: 20070501, end: 20070601
  7. PHENTERMINE [Concomitant]

REACTIONS (1)
  - PULMONARY EMBOLISM [None]
